FAERS Safety Report 5509273-5 (Version None)
Quarter: 2007Q4

REPORT INFORMATION
  Report Type: 
  Country: None (occurrence: None)
  Receive Date: 20071107
  Receipt Date: 20071030
  Transmission Date: 20080405
  Serious: Yes (Other)
  Sender: FDA-Public Use
  Company Number: US-GENENTECH-248191

PATIENT
  Sex: Female
  Weight: 77 kg

DRUGS (7)
  1. BEVACIZUMAB [Suspect]
     Indication: BLADDER CANCER
     Dosage: 1230 MG, Q3W
     Route: 042
     Dates: start: 20070208, end: 20070411
  2. GEMCITABINE [Concomitant]
     Indication: BLADDER CANCER
     Dosage: UNK, UNK
     Dates: start: 20070208, end: 20070418
  3. CISPLATIN [Concomitant]
     Indication: BLADDER CANCER
     Dosage: UNK, UNK
     Dates: start: 20070208, end: 20070411
  4. ULTRAM [Concomitant]
     Indication: PAIN
     Dosage: 50 MG, UNK
  5. PAXIL [Concomitant]
     Indication: DEPRESSION
     Dosage: 20 MG, UNK
  6. DECADRON [Concomitant]
     Indication: NAUSEA
  7. ALOXI [Concomitant]
     Indication: NAUSEA

REACTIONS (1)
  - EYE HAEMORRHAGE [None]
